FAERS Safety Report 23405460 (Version 1)
Quarter: 2024Q1

REPORT INFORMATION
  Report Type: Report from Study
  Country: US (occurrence: US)
  Receive Date: 20240116
  Receipt Date: 20240116
  Transmission Date: 20240409
  Serious: Yes (Hospitalization)
  Sender: FDA-Public Use
  Company Number: US-ASTELLAS-2024US001115

PATIENT
  Sex: Male

DRUGS (1)
  1. ENZALUTAMIDE [Suspect]
     Active Substance: ENZALUTAMIDE
     Indication: Prostate cancer
     Route: 048

REACTIONS (7)
  - Chest pain [Recovered/Resolved]
  - Fatigue [Unknown]
  - Bone pain [Unknown]
  - Night sweats [Unknown]
  - Hypoaesthesia [Unknown]
  - Headache [Unknown]
  - Inflammation [Unknown]
